FAERS Safety Report 8046255-6 (Version None)
Quarter: 2012Q1

REPORT INFORMATION
  Report Type: 
  Country: None (occurrence: None)
  Receive Date: 20120113
  Receipt Date: 20120102
  Transmission Date: 20120608
  Serious: Yes (Hospitalization, Other)
  Sender: FDA-Public Use
  Company Number: IT-PFIZER INC-2012000942

PATIENT
  Age: 67 Year
  Sex: Female

DRUGS (2)
  1. AMIODARONE HCL [Suspect]
     Dosage: 200 MG, 1X/DAY
  2. AMIODARONE HCL [Suspect]
     Indication: VENTRICULAR EXTRASYSTOLES
     Dosage: 2600 MG, 13 AMIODARONE CAPSULES
     Route: 048

REACTIONS (15)
  - BUNDLE BRANCH BLOCK LEFT [None]
  - INTENTIONAL OVERDOSE [None]
  - ELECTROCARDIOGRAM POOR R-WAVE PROGRESSION [None]
  - EMPHYSEMA [None]
  - SUICIDE ATTEMPT [None]
  - ELECTROCARDIOGRAM REPOLARISATION ABNORMALITY [None]
  - BLOOD GLUCOSE INCREASED [None]
  - ELECTROCARDIOGRAM QT PROLONGED [None]
  - ELECTROCARDIOGRAM T WAVE INVERSION [None]
  - ATRIAL FIBRILLATION [None]
  - TOXICITY TO VARIOUS AGENTS [None]
  - GALLOP RHYTHM PRESENT [None]
  - CARDIAC MURMUR [None]
  - ELECTROCARDIOGRAM QRS COMPLEX ABNORMAL [None]
  - MYOCARDIAL INFARCTION [None]
